FAERS Safety Report 6745603-4 (Version None)
Quarter: 2010Q2

REPORT INFORMATION
  Report Type: 
  Country: None (occurrence: None)
  Receive Date: 20100528
  Receipt Date: 20100521
  Transmission Date: 20101027
  Serious: Yes (Hospitalization)
  Sender: FDA-Public Use
  Company Number: FR-B.I. PHARMACEUTICALS,INC./RIDGEFIELD-2010-FF-00432FF

PATIENT
  Sex: Female

DRUGS (10)
  1. ATROVENT [Suspect]
     Indication: BRONCHOSPASM
     Route: 030
     Dates: start: 20090608, end: 20090612
  2. LOVENOX [Suspect]
     Route: 058
     Dates: start: 20090604, end: 20090617
  3. SOLU-MEDROL [Suspect]
     Indication: BRONCHOSPASM
     Dosage: 40 MG
     Route: 042
     Dates: start: 20090602, end: 20090613
  4. BRICANYL [Suspect]
     Indication: BRONCHOSPASM
     Route: 030
     Dates: start: 20090608, end: 20090612
  5. FUROSEMIDE [Concomitant]
  6. SPIRONOLACTONE [Concomitant]
  7. BISOPROLOL [Concomitant]
  8. NITROGLYCERIN [Concomitant]
  9. KARDEGIC [Concomitant]
  10. AUGMENTIN '125' [Concomitant]
     Dates: start: 20090523, end: 20090623

REACTIONS (1)
  - THROMBOCYTOPENIA [None]
